FAERS Safety Report 24956040 (Version 1)
Quarter: 2025Q1

REPORT INFORMATION
  Report Type: Spontaneous
  Country: KR (occurrence: KR)
  Receive Date: 20250211
  Receipt Date: 20250211
  Transmission Date: 20250408
  Serious: Yes (Other)
  Sender: GLAXOSMITHKLINE
  Company Number: KR-TAKEDA-2025TUS012441

PATIENT

DRUGS (1)
  1. ZEJULA [Suspect]
     Active Substance: NIRAPARIB
     Indication: Ovarian cancer stage IV
     Dosage: 200 MILLIGRAM, QD
     Route: 065
     Dates: start: 202210

REACTIONS (1)
  - Ovarian cancer recurrent [Unknown]

NARRATIVE: CASE EVENT DATE: 20230307
